FAERS Safety Report 4734226-4 (Version None)
Quarter: 2005Q3

REPORT INFORMATION
  Report Type: 
  Country: None (occurrence: None)
  Receive Date: 20050804
  Receipt Date: 20040715
  Transmission Date: 20060218
  Serious: Yes (Death, Hospitalization)
  Sender: FDA-Public Use
  Company Number: JPN-2002-000699

PATIENT
  Age: 54 Year
  Sex: Male
  Weight: 59.3 kg

DRUGS (16)
  1. QUADRAMET [Suspect]
     Indication: METASTASES TO BONE
     Dosage: 18.5  MBQ, 1X/DA, INTRAVENOUS
     Route: 042
     Dates: start: 20020611, end: 20020611
  2. CASODEX [Concomitant]
  3. DEXAMETHASONE [Concomitant]
  4. ZOLADEX [Concomitant]
  5. MOSCONTIN (MORPHINE SULFATE) [Concomitant]
  6. VOLTAREN [Concomitant]
  7. MORPHINE HYDROCHLORIDE (MIORPHINE HYDROCHLORIDE) [Concomitant]
  8. PURSENNID (SENNA LEAF) [Concomitant]
  9. LEVOFLOXACIN [Concomitant]
  10. FLOMOX (CEFCAPENE PIVOXIL HYDROCHLORIDE) [Concomitant]
  11. MAGNESIUM OXIDE (MAGNESIUM OXIDE) [Concomitant]
  12. DEPAS [Concomitant]
  13. TEGRETOL [Concomitant]
  14. FLUVOXAMINE MALEATE [Concomitant]
  15. CEFAZOLIN SODIUM [Concomitant]
  16. SODIUM CHLORIDE [Concomitant]

REACTIONS (31)
  - ACTIVATED PARTIAL THROMBOPLASTIN TIME PROLONGED [None]
  - ASTHENIA [None]
  - BLADDER TAMPONADE [None]
  - BLOOD LACTATE DEHYDROGENASE INCREASED [None]
  - BLOOD POTASSIUM INCREASED [None]
  - CANDIDIASIS [None]
  - CARDIAC FAILURE CONGESTIVE [None]
  - DIFFICULTY IN WALKING [None]
  - GAIT DISTURBANCE [None]
  - HAEMATOCRIT DECREASED [None]
  - HAEMATOMA [None]
  - HAEMOGLOBIN DECREASED [None]
  - HYPOAESTHESIA [None]
  - LIMB DISCOMFORT [None]
  - MALIGNANT NEOPLASM PROGRESSION [None]
  - METASTASES TO LIVER [None]
  - METASTASES TO LUNG [None]
  - PAIN [None]
  - PAIN IN EXTREMITY [None]
  - PNEUMONIA [None]
  - PNEUMONIA ASPIRATION [None]
  - POSTRENAL FAILURE [None]
  - PROSTATE CANCER [None]
  - PROTHROMBIN TIME PROLONGED [None]
  - PULMONARY OEDEMA [None]
  - RED BLOOD CELL COUNT DECREASED [None]
  - RENAL FAILURE [None]
  - RESPIRATORY FAILURE [None]
  - SPUTUM CULTURE POSITIVE [None]
  - STAPHYLOCOCCAL INFECTION [None]
  - URINARY RETENTION [None]
